FAERS Safety Report 15993193 (Version 1)
Quarter: 2019Q1

REPORT INFORMATION
  Report Type: Spontaneous
  Country: US (occurrence: US)
  Receive Date: 20190222
  Receipt Date: 20190222
  Transmission Date: 20190418
  Serious: No
  Sender: FDA-Public Use
  Company Number: US-TEVA-2019-US-1005913

PATIENT
  Sex: Female

DRUGS (7)
  1. VITAMIN D3 [Concomitant]
     Active Substance: CHOLECALCIFEROL
  2. COPAXONE [Suspect]
     Active Substance: GLATIRAMER ACETATE
     Indication: MULTIPLE SCLEROSIS
     Dosage: 17.1429 MILLIGRAM/MILLILITERS DAILY;
     Route: 065
     Dates: start: 20190123
  3. HYDROCHLOROTHIAZIDE. [Concomitant]
     Active Substance: HYDROCHLOROTHIAZIDE
  4. LINZESS [Concomitant]
     Active Substance: LINACLOTIDE
  5. BENICAR [Concomitant]
     Active Substance: OLMESARTAN MEDOXOMIL
  6. GABAPENTIN. [Concomitant]
     Active Substance: GABAPENTIN
  7. VITAMIN B12 [Concomitant]
     Active Substance: CYANOCOBALAMIN

REACTIONS (10)
  - Rash [Unknown]
  - Oral mucosal blistering [Recovered/Resolved]
  - Product quality issue [Unknown]
  - Scab [Not Recovered/Not Resolved]
  - Lip pain [Unknown]
  - Mouth swelling [Recovered/Resolved]
  - Injection site reaction [Unknown]
  - Oral pain [Recovered/Resolved]
  - Erythema [Unknown]
  - Feeding disorder [Unknown]
